FAERS Safety Report 7532520-5 (Version None)
Quarter: 2011Q2

REPORT INFORMATION
  Report Type: 
  Country: None (occurrence: None)
  Receive Date: 20110608
  Receipt Date: 20110526
  Transmission Date: 20111010
  Serious: Yes (Other)
  Sender: FDA-Public Use
  Company Number: PHHY2011JP45456

PATIENT

DRUGS (4)
  1. INTERFERON BETA-1B [Suspect]
     Indication: MULTIPLE SCLEROSIS
     Dosage: 600 X 10^4
  2. VINCRISTINE [Suspect]
     Dosage: UNK UKN, UNK
  3. INTERFERON BETA-1B [Suspect]
     Dosage: 600 X 10^4
  4. NIMUSTINE [Suspect]
     Indication: GLIOBLASTOMA
     Dosage: 150 MG, BID

REACTIONS (2)
  - BONE MARROW FAILURE [None]
  - BONE MARROW TOXICITY [None]
